FAERS Safety Report 9483973 (Version 2)
Quarter: 2013Q3

REPORT INFORMATION
  Report Type: Report from Study
  Country: CN (occurrence: CN)
  Receive Date: 20130828
  Receipt Date: 20130828
  Transmission Date: 20140515
  Serious: Yes (Hospitalization, Other)
  Sender: FDA-Public Use
  Company Number: PHHO2010CN06545

PATIENT
  Age: 51 Year
  Sex: Male
  Weight: 84 kg

DRUGS (14)
  1. ALISKIREN [Suspect]
     Indication: CARDIOVASCULAR DISORDER
     Route: 048
     Dates: start: 20090605, end: 20100429
  2. INSULIN [Concomitant]
  3. VALSARTAN [Concomitant]
  4. ASPIRIN [Concomitant]
     Indication: THROMBOSIS PROPHYLAXIS
     Dosage: 100 MG, QD
     Route: 048
  5. ATORVASTATIN [Concomitant]
  6. METOPROLOL [Concomitant]
     Indication: CONGESTIVE CARDIOMYOPATHY
     Dosage: 12.5 MG, BID
     Route: 048
     Dates: start: 2009, end: 20111105
  7. AMLODIPINE [Concomitant]
     Indication: HYPERTENSION
     Dosage: 5 MG, QD
     Route: 048
  8. DIGOXIN [Concomitant]
  9. TRIMETAZIDINE [Concomitant]
  10. ACIPIMOX [Concomitant]
  11. KETOSTERIL [Concomitant]
  12. ESSENTIALE [Concomitant]
  13. TELMISARTAN [Concomitant]
     Indication: HYPERTENSION
     Dosage: 80 MG, QD
     Route: 048
  14. MECOBALAMIN [Concomitant]
     Indication: DIABETIC NEUROPATHY
     Dosage: 500 MG, TID
     Route: 048
     Dates: start: 2005

REACTIONS (11)
  - Diabetic nephropathy [Not Recovered/Not Resolved]
  - Concomitant disease progression [Not Recovered/Not Resolved]
  - Renal failure chronic [Not Recovered/Not Resolved]
  - Oedema peripheral [Not Recovered/Not Resolved]
  - Congestive cardiomyopathy [Not Recovered/Not Resolved]
  - Disease progression [Not Recovered/Not Resolved]
  - Drug ineffective [Not Recovered/Not Resolved]
  - Lung infection [Not Recovered/Not Resolved]
  - Chest discomfort [Not Recovered/Not Resolved]
  - Tachypnoea [Not Recovered/Not Resolved]
  - Cardiac failure [Recovering/Resolving]
